FAERS Safety Report 9226066 (Version 1)
Quarter: 2013Q2

REPORT INFORMATION
  Report Type: Spontaneous
  Country: US (occurrence: US)
  Receive Date: 20130411
  Receipt Date: 20130411
  Transmission Date: 20140414
  Serious: No
  Sender: FDA-Public Use
  Company Number: US-009507513-1304USA004928

PATIENT
  Sex: Female
  Weight: 113.38 kg

DRUGS (1)
  1. IMPLANON [Suspect]
     Indication: CONTRACEPTION
     Dosage: 1 68 MG ROD UP TO  3 YEARS
     Route: 059
     Dates: start: 20100915

REACTIONS (13)
  - Headache [Unknown]
  - Weight increased [Unknown]
  - Back pain [Unknown]
  - Depression [Unknown]
  - Pallor [Unknown]
  - Asthenia [Unknown]
  - Fatigue [Unknown]
  - Anxiety [Unknown]
  - Mood swings [Unknown]
  - Arthralgia [Unknown]
  - Breast pain [Unknown]
  - Amenorrhoea [Unknown]
  - Adnexa uteri pain [Unknown]
